FAERS Safety Report 4957825-3 (Version None)
Quarter: 2006Q1

REPORT INFORMATION
  Report Type: 
  Country: None (occurrence: None)
  Receive Date: 20060324
  Receipt Date: 20060313
  Transmission Date: 20060701
  Serious: Yes (Hospitalization)
  Sender: FDA-Public Use
  Company Number: 2006035696

PATIENT
  Age: 32 Year
  Sex: Female

DRUGS (3)
  1. PREDNISOLONE [Suspect]
     Indication: HEART AND LUNG TRANSPLANT
  2. TACROLIMUS (TACROLIMUS) [Suspect]
     Indication: HEART AND LUNG TRANSPLANT
  3. MYCOPHENOLIC ACID [Suspect]
     Indication: HEART AND LUNG TRANSPLANT

REACTIONS (19)
  - AORTIC VALVE INCOMPETENCE [None]
  - BACTERAEMIA [None]
  - BRAIN ABSCESS [None]
  - C-REACTIVE PROTEIN INCREASED [None]
  - CARDIAC MURMUR [None]
  - CARDIAC VALVE VEGETATION [None]
  - COMPLICATIONS OF TRANSPLANT SURGERY [None]
  - ENDOCARDITIS ENTEROCOCCAL [None]
  - HEADACHE [None]
  - LEUKOCYTOSIS [None]
  - NIGHT SWEATS [None]
  - OSLER'S NODES [None]
  - PAIN OF SKIN [None]
  - REBOUND EFFECT [None]
  - RENAL INFARCT [None]
  - SKIN LESION [None]
  - SPLENIC INFARCTION [None]
  - SPLINTER HAEMORRHAGES [None]
  - THERAPY NON-RESPONDER [None]
